FAERS Safety Report 14868807 (Version 1)
Quarter: 2018Q2

REPORT INFORMATION
  Report Type: Spontaneous
  Country: US (occurrence: US)
  Receive Date: 20180509
  Receipt Date: 20180509
  Transmission Date: 20180711
  Serious: No
  Sender: FDA-Public Use
  Company Number: US-PFIZER INC-2018142670

PATIENT
  Age: 63 Year
  Sex: Female
  Weight: 91.62 kg

DRUGS (1)
  1. XELJANZ [Suspect]
     Active Substance: TOFACITINIB CITRATE
     Indication: RHEUMATOID ARTHRITIS
     Dosage: 10 MG, 1X/DAY (TAKING 5MG 2 TABS IN THE EVENING)
     Route: 048
     Dates: start: 20180321

REACTIONS (2)
  - Muscle spasms [Unknown]
  - Product use issue [Unknown]

NARRATIVE: CASE EVENT DATE: 20180321
